FAERS Safety Report 12742828 (Version 1)
Quarter: 2016Q3

REPORT INFORMATION
  Report Type: Spontaneous
  Country: US (occurrence: US)
  Receive Date: 20160914
  Receipt Date: 20160914
  Transmission Date: 20161109
  Serious: Yes (Other)
  Sender: FDA-Public Use
  Company Number: None

PATIENT
  Age: 24 Year
  Sex: Female
  Weight: 65.25 kg

DRUGS (3)
  1. METRONIDAZOLE TABLETS [Suspect]
     Active Substance: METRONIDAZOLE
     Indication: BACTERIAL VAGINOSIS
     Route: 048
     Dates: start: 20151110, end: 20151126
  2. PROBIOTICS GREENS SUPPLEMENTS [Concomitant]
  3. CHLOROPHYLL [Concomitant]

REACTIONS (5)
  - Impaired work ability [None]
  - Activities of daily living impaired [None]
  - Skin odour abnormal [None]
  - Disease recurrence [None]
  - Bacterial vaginosis [None]

NARRATIVE: CASE EVENT DATE: 20151118
